FAERS Safety Report 10693997 (Version 2)
Quarter: 2015Q1

REPORT INFORMATION
  Report Type: Spontaneous
  Country: US (occurrence: US)
  Receive Date: 20150106
  Receipt Date: 20150127
  Transmission Date: 20150721
  Serious: No
  Sender: FDA-Public Use
  Company Number: US-009507513-1501USA001092

PATIENT
  Sex: Female
  Weight: 66.21 kg

DRUGS (9)
  1. GNC WOMENS ULTRA MEGA 50 PLUS MULTIVITAMIN [Concomitant]
     Indication: PRODUCT USED FOR UNKNOWN INDICATION
     Dosage: UNK, UNKNOWN
  2. PRAVASTATIN SODIUM. [Concomitant]
     Active Substance: PRAVASTATIN SODIUM
     Indication: BLOOD CHOLESTEROL
     Dosage: 80 MG, UNKNOWN
  3. EQUALINE ALLERGY RELIEF [Concomitant]
     Active Substance: LORATADINE
     Indication: NASAL CONGESTION
  4. ACETAMINOPHEN. [Concomitant]
     Active Substance: ACETAMINOPHEN
     Indication: BACK PAIN
  5. EQUALINE ALLERGY RELIEF [Concomitant]
     Active Substance: LORATADINE
     Indication: SNEEZING
     Dosage: UNK, UNKNOWN
  6. OXYTROL FOR WOMEN [Suspect]
     Active Substance: OXYBUTYNIN
     Indication: POLLAKIURIA
     Dosage: 1 DF, Q4D
     Route: 062
     Dates: start: 201411, end: 20141204
  7. LOSARTAN POTASSIUM. [Concomitant]
     Active Substance: LOSARTAN POTASSIUM
     Indication: BLOOD PRESSURE
     Dosage: 50 MG, UNKNOWN
  8. CHOLECALCIFEROL [Concomitant]
     Active Substance: CHOLECALCIFEROL
     Indication: PRODUCT USED FOR UNKNOWN INDICATION
     Dosage: 5000 IU, UNKNOWN
  9. ACETAMINOPHEN. [Concomitant]
     Active Substance: ACETAMINOPHEN
     Indication: PAIN IN EXTREMITY
     Dosage: 150 MG, UNKNOWN

REACTIONS (5)
  - Rash [Recovered/Resolved]
  - Application site burn [Recovered/Resolved]
  - Pruritus [Recovered/Resolved]
  - Application site erythema [Recovered/Resolved]
  - Application site discomfort [Recovered/Resolved]

NARRATIVE: CASE EVENT DATE: 2014
